FAERS Safety Report 18861425 (Version 1)
Quarter: 2021Q1

REPORT INFORMATION
  Report Type: Spontaneous
  Country: GB (occurrence: GB)
  Receive Date: 20210209
  Receipt Date: 20210209
  Transmission Date: 20210420
  Serious: Yes (Other)
  Sender: FDA-Public Use
  Company Number: GB-AUROBINDO-AUR-APL-2021-004829

PATIENT
  Age: 48 Year
  Sex: Male
  Weight: 80 kg

DRUGS (2)
  1. PREDNISOLONE. [Concomitant]
     Active Substance: PREDNISOLONE
     Indication: ILL-DEFINED DISORDER
     Dosage: UNK
     Route: 065
  2. TERBINAFINE. [Suspect]
     Active Substance: TERBINAFINE
     Indication: DERMATITIS EXFOLIATIVE GENERALISED
     Dosage: 250 MILLIGRAM, ONCE A DAY
     Route: 048
     Dates: start: 20201212, end: 20201216

REACTIONS (4)
  - Visual impairment [Recovered/Resolved]
  - Headache [Unknown]
  - Tunnel vision [Unknown]
  - Migraine with aura [Unknown]

NARRATIVE: CASE EVENT DATE: 20201214
